FAERS Safety Report 9582760 (Version 1)
Quarter: 2013Q4

REPORT INFORMATION
  Report Type: Spontaneous
  Country: US (occurrence: US)
  Receive Date: 20131002
  Receipt Date: 20131002
  Transmission Date: 20140711
  Serious: No
  Sender: FDA-Public Use
  Company Number: US-AMGEN-USASP2013042925

PATIENT
  Age: 38 Year
  Sex: Female
  Weight: 99.77 kg

DRUGS (2)
  1. ENBREL [Suspect]
     Indication: RHEUMATOID ARTHRITIS
     Dosage: 50 MG, EVERY WEEK
     Route: 058
  2. METHOTREXATE [Concomitant]
     Dosage: 25 MG/ML, UNK

REACTIONS (1)
  - Menstruation irregular [Unknown]
